FAERS Safety Report 9373773 (Version 2)
Quarter: 2013Q3

REPORT INFORMATION
  Report Type: Spontaneous
  Country: US (occurrence: US)
  Receive Date: 20130628
  Receipt Date: 20130730
  Transmission Date: 20140515
  Serious: No
  Sender: FDA-Public Use
  Company Number: US-009507513-1306USA010838

PATIENT
  Age: 22 Year
  Sex: Female
  Weight: 72.56 kg

DRUGS (1)
  1. IMPLANON [Suspect]
     Dosage: ONE ROD/EVERY THREE YEARS
     Route: 059
     Dates: start: 201106, end: 20130624

REACTIONS (5)
  - Device breakage [Recovered/Resolved]
  - Device kink [Recovered/Resolved]
  - Device deployment issue [Recovered/Resolved]
  - Device difficult to use [Recovered/Resolved]
  - No adverse event [Unknown]
